FAERS Safety Report 7027795-5 (Version None)
Quarter: 2010Q3

REPORT INFORMATION
  Report Type: 
  Country: None (occurrence: None)
  Receive Date: 20100819
  Receipt Date: 20100810
  Transmission Date: 20110219
  Serious: Yes (Death, Other)
  Sender: FDA-Public Use
  Company Number: THYM-1001243

PATIENT
  Age: 62 Year
  Sex: Female
  Weight: 40 kg

DRUGS (7)
  1. THYMOGLOBULIN [Suspect]
     Indication: ACUTE GRAFT VERSUS HOST DISEASE
     Dosage: INTRAVENOUS ; 1 MG/KG, QD, INTRAVENOUS
     Route: 042
     Dates: start: 20090516, end: 20090101
  2. THYMOGLOBULIN [Suspect]
     Indication: STEM CELL TRANSPLANT
     Dosage: INTRAVENOUS ; 1 MG/KG, QD, INTRAVENOUS
     Route: 042
     Dates: start: 20090516, end: 20090101
  3. THYMOGLOBULIN [Suspect]
     Indication: ACUTE GRAFT VERSUS HOST DISEASE
     Dosage: INTRAVENOUS ; 1 MG/KG, QD, INTRAVENOUS
     Route: 042
     Dates: start: 20090618, end: 20090618
  4. THYMOGLOBULIN [Suspect]
     Indication: STEM CELL TRANSPLANT
     Dosage: INTRAVENOUS ; 1 MG/KG, QD, INTRAVENOUS
     Route: 042
     Dates: start: 20090618, end: 20090618
  5. FLUDARA [Concomitant]
  6. MELPHALAN HYDROCHLORIDE [Concomitant]
  7. CYTARABINE [Concomitant]

REACTIONS (4)
  - ACUTE GRAFT VERSUS HOST DISEASE [None]
  - MALIGNANT NEOPLASM PROGRESSION [None]
  - PERIPHERAL T-CELL LYMPHOMA UNSPECIFIED [None]
  - RENAL FAILURE [None]
